FAERS Safety Report 10052678 (Version 1)
Quarter: 2014Q1

REPORT INFORMATION
  Report Type: Spontaneous
  Country: CN (occurrence: None)
  Receive Date: 20140331
  Receipt Date: 20140331
  Transmission Date: 20141002
  Serious: Yes (Hospitalization, Other)
  Sender: FDA-Public Use
  Company Number: 2014000087

PATIENT
  Age: 66 Year
  Sex: Female

DRUGS (4)
  1. ACEON [Suspect]
     Indication: HYPERTENSION
     Dates: start: 1998
  2. RESERPINE [Concomitant]
  3. HYDROCHLOROTHIAZIDE [Concomitant]
  4. AMLODIPINE [Concomitant]

REACTIONS (5)
  - Drug ineffective [None]
  - Lacunar infarction [None]
  - Hypertensive heart disease [None]
  - Sleep apnoea syndrome [None]
  - Dizziness [None]
